FAERS Safety Report 4864840-7 (Version None)
Quarter: 2005Q4

REPORT INFORMATION
  Report Type: 
  Country: None (occurrence: None)
  Receive Date: 20051222
  Receipt Date: 20050930
  Transmission Date: 20060501
  Serious: Yes (Hospitalization)
  Sender: FDA-Public Use
  Company Number: US-MERCK-0510USA02076

PATIENT
  Age: 60 Year
  Sex: Male
  Weight: 78 kg

DRUGS (6)
  1. VIOXX [Suspect]
     Indication: LIMB INJURY
     Route: 048
     Dates: start: 20020101, end: 20040501
  2. VIOXX [Suspect]
     Indication: OSTEOARTHRITIS
     Route: 048
     Dates: start: 20020101, end: 20040501
  3. NEURONTIN [Concomitant]
     Indication: PAIN
     Route: 065
  4. ACETAMINOPHEN AND HYDROCODONE BITARTRATE [Concomitant]
     Indication: PAIN
     Route: 065
  5. PERCOCET [Concomitant]
     Route: 065
  6. ULTRACET [Concomitant]
     Indication: PAIN
     Route: 065

REACTIONS (4)
  - ACUTE MYOCARDIAL INFARCTION [None]
  - ARTERIAL OCCLUSIVE DISEASE [None]
  - ARTHROPATHY [None]
  - BLOOD CHOLESTEROL ABNORMAL [None]
